FAERS Safety Report 4678025-0 (Version None)
Quarter: 2005Q2

REPORT INFORMATION
  Report Type: 
  Country: None (occurrence: None)
  Receive Date: 20050531
  Receipt Date: 20050527
  Transmission Date: 20051028
  Serious: Yes (Hospitalization)
  Sender: FDA-Public Use
  Company Number: FR-MERCK-0505FRA00110

PATIENT
  Age: 55 Year
  Sex: Male

DRUGS (6)
  1. ZOCOR [Suspect]
     Route: 048
     Dates: start: 20050114, end: 20050101
  2. ACEBUTOLOL HYDROCHLORIDE [Suspect]
     Route: 048
     Dates: start: 20050114
  3. BROMAZEPAM [Suspect]
     Route: 048
     Dates: start: 20050114
  4. ASPIRIN LYSINE [Suspect]
     Route: 048
     Dates: start: 20050114
  5. PERINDOPRIL ERBUMINE [Suspect]
     Route: 048
     Dates: start: 20050114
  6. CLOPIDOGREL BISULFATE [Suspect]
     Route: 048
     Dates: start: 20050114

REACTIONS (1)
  - TENDON RUPTURE [None]
